FAERS Safety Report 9531053 (Version 1)
Quarter: 2013Q2

REPORT INFORMATION
  Report Type: Spontaneous
  Country: US (occurrence: None)
  Receive Date: 20130418
  Receipt Date: 20130418
  Transmission Date: 20140414
  Serious: Yes (Other)
  Sender: FDA-Public Use
  Company Number: 1205USA03105

PATIENT
  Age: 80 Year
  Sex: Female

DRUGS (1)
  1. SINGULAIR (MONTELUKAST SODIUM) TABLET [Suspect]
     Route: 048
     Dates: start: 20110818, end: 20110826

REACTIONS (1)
  - Muscle spasms [None]
